FAERS Safety Report 8248545-0 (Version None)
Quarter: 2012Q1

REPORT INFORMATION
  Report Type: 
  Country: None (occurrence: None)
  Receive Date: 20120330
  Receipt Date: 20120321
  Transmission Date: 20120608
  Serious: Yes (Hospitalization, Other)
  Sender: FDA-Public Use
  Company Number: GB-ASTRAZENECA-2012SE18617

PATIENT
  Age: 20 Year
  Sex: Female

DRUGS (9)
  1. SEROQUEL XR [Suspect]
     Route: 048
  2. HALOPERIDOL [Concomitant]
     Indication: ADVERSE DRUG REACTION
  3. LORAZEPAM [Concomitant]
     Indication: ADVERSE DRUG REACTION
  4. LORAZEPAM [Concomitant]
     Dosage: INCREASED
  5. DIAZEPAM [Concomitant]
  6. HALOPERIDOL [Concomitant]
     Dosage: INCREASED
  7. VITAMIN D [Suspect]
  8. DIAZEPAM [Concomitant]
     Indication: ADVERSE DRUG REACTION
  9. CLOZAPINE [Suspect]

REACTIONS (21)
  - SPEECH DISORDER [None]
  - MENTAL IMPAIRMENT [None]
  - SELF-INJURIOUS IDEATION [None]
  - PANIC ATTACK [None]
  - SOCIAL AVOIDANT BEHAVIOUR [None]
  - PARADOXICAL DRUG REACTION [None]
  - ADVERSE DRUG REACTION [None]
  - AGITATION [None]
  - INTENTIONAL DRUG MISUSE [None]
  - HEADACHE [None]
  - PARANOIA [None]
  - NAUSEA [None]
  - ANXIETY [None]
  - DRUG DOSE OMISSION [None]
  - SELF INJURIOUS BEHAVIOUR [None]
  - AGGRESSION [None]
  - IRRITABILITY [None]
  - SUICIDAL IDEATION [None]
  - DRUG INTOLERANCE [None]
  - RESTLESSNESS [None]
  - CONSTIPATION [None]
